FAERS Safety Report 8789833 (Version 3)
Quarter: 2012Q4

REPORT INFORMATION
  Report Type: 
  Country: CA (occurrence: CA)
  Receive Date: 20120917
  Receipt Date: 20121207
  Transmission Date: 20130627
  Serious: Yes (Other)
  Sender: FDA-Public Use
  Company Number: CA-BAYER-2012-096146

PATIENT
  Age: 10 Month

DRUGS (7)
  1. KOGENATE [Suspect]
     Indication: PROPHYLAXIS
     Dosage: UNK
     Dates: start: 201202, end: 20120703
  2. KOGENATE [Suspect]
     Indication: SURGERY
     Dosage: UNK
     Dates: start: 201202, end: 20120703
  3. KOGENATE [Suspect]
     Indication: HAEMARTHROSIS
     Dosage: UNK
     Dates: start: 201202, end: 20120703
  4. KOGENATE [Suspect]
     Indication: PROPHYLAXIS
     Dosage: UNK
     Dates: start: 201202, end: 20120703
  5. KOGENATE [Suspect]
     Indication: PROPHYLAXIS
     Dosage: UNK
     Dates: start: 201202, end: 20120703
  6. KOGENATE [Suspect]
     Indication: PROPHYLAXIS
     Dosage: UNK
     Dates: start: 201202, end: 20120703
  7. ANTIBIOTICS [Concomitant]
     Indication: WOUND INFECTION
     Dosage: UNK
     Dates: start: 201203, end: 201203

REACTIONS (2)
  - Anti factor VIII antibody positive [None]
  - Cardiac operation [None]
